FAERS Safety Report 8708284 (Version 4)
Quarter: 2014Q3

REPORT INFORMATION
  Report Type: Spontaneous
  Country: US (occurrence: US)
  Receive Date: 20120806
  Receipt Date: 20140812
  Transmission Date: 20150326
  Serious: Yes (Hospitalization, Other)
  Sender: FDA-Public Use
  Company Number: US-009507513-1208USA000198

PATIENT
  Sex: Female
  Weight: 106.58 kg

DRUGS (1)
  1. NUVARING [Suspect]
     Active Substance: ETHINYL ESTRADIOL\ETONOGESTREL
     Indication: CONTRACEPTION
     Dosage: 1 DF, QM
     Route: 067
     Dates: start: 20090819, end: 20101221

REACTIONS (10)
  - Pulmonary embolism [Unknown]
  - Adverse drug reaction [Unknown]
  - Head injury [Unknown]
  - Urinary tract infection [Unknown]
  - Rhinitis [Unknown]
  - Gastritis [Unknown]
  - Portal vein thrombosis [Recovering/Resolving]
  - Deep vein thrombosis [Unknown]
  - Embolism venous [Unknown]
  - Hypercoagulation [Unknown]

NARRATIVE: CASE EVENT DATE: 20101220
